FAERS Safety Report 20102505 (Version 1)
Quarter: 2021Q4

REPORT INFORMATION
  Report Type: Spontaneous
  Country: US (occurrence: US)
  Receive Date: 20211123
  Receipt Date: 20211123
  Transmission Date: 20220303
  Serious: No
  Sender: FDA-Public Use
  Company Number: US-APOTEX-2021AP044200

PATIENT
  Age: 55 Year
  Sex: Female

DRUGS (3)
  1. OLOPATADINE HYDROCHLORIDE [Suspect]
     Active Substance: OLOPATADINE HYDROCHLORIDE
     Indication: Dry eye
     Dosage: UNK
     Route: 065
  2. OLOPATADINE HYDROCHLORIDE [Suspect]
     Active Substance: OLOPATADINE HYDROCHLORIDE
     Dosage: 2 GTT DROPS, BID (1 DROP IN EACH EYE TWICE DAILY)
     Route: 047
     Dates: start: 202110
  3. ARMOUR THYROID [Concomitant]
     Active Substance: THYROID, PORCINE
     Indication: Thyroid disorder
     Dosage: UNK (60MG ONCE A DAY ON THE FIRST DAY AND 75MG ON THE NEXT DAY)
     Route: 065

REACTIONS (7)
  - Swelling of eyelid [Not Recovered/Not Resolved]
  - Product quality issue [Unknown]
  - Corneal deposits [Not Recovered/Not Resolved]
  - Foreign body sensation in eyes [Not Recovered/Not Resolved]
  - Eye irritation [Not Recovered/Not Resolved]
  - Dry eye [Not Recovered/Not Resolved]
  - Eye pain [Not Recovered/Not Resolved]

NARRATIVE: CASE EVENT DATE: 20211005
